FAERS Safety Report 5551217-4 (Version None)
Quarter: 2007Q4

REPORT INFORMATION
  Report Type: 
  Country: None (occurrence: None)
  Receive Date: 20071128
  Receipt Date: 20070822
  Transmission Date: 20080405
  Serious: Yes (Other)
  Sender: FDA-Public Use
  Company Number: 2007070833

PATIENT
  Sex: Male
  Weight: 70.8 kg

DRUGS (5)
  1. LIPITOR [Suspect]
     Indication: BLOOD CHOLESTEROL
     Dosage: 10 MG (10 MG, 1 IN 1 D)
     Dates: end: 20070101
  2. ATENOLOL [Concomitant]
  3. PRILOSEC [Concomitant]
  4. PLAVIX [Concomitant]
  5. ISOSORBIDE (ISOSORBIDE) [Concomitant]

REACTIONS (3)
  - ANGINA PECTORIS [None]
  - MUSCULOSKELETAL DISCOMFORT [None]
  - MYALGIA [None]
